FAERS Safety Report 10412931 (Version 1)
Quarter: 2014Q3

REPORT INFORMATION
  Report Type: Spontaneous
  Country: US (occurrence: None)
  Receive Date: 20140826
  Receipt Date: 20140826
  Transmission Date: 20150326
  Serious: No
  Sender: FDA-Public Use
  Company Number: None

PATIENT
  Age: 56 Year
  Sex: Female
  Weight: 77.11 kg

DRUGS (4)
  1. CITALOPRAM [Suspect]
     Active Substance: CITALOPRAM HYDROBROMIDE
     Indication: DEPRESSION
     Dosage: 1 DAY, ONCE DAILY, TAKEN BY MOUTH
     Route: 048
     Dates: start: 20140629, end: 20140729
  2. OXYCODONE [Suspect]
     Active Substance: OXYCODONE
     Indication: ARTHRITIS
     Dosage: PILL 6 HOURS IF NEEDED?AS NEEDED?TAKEN BY MOUTH
     Route: 048
     Dates: start: 20140808, end: 20140825
  3. OXYCODONE [Suspect]
     Active Substance: OXYCODONE
     Indication: PROCEDURAL COMPLICATION
     Dosage: PILL 6 HOURS IF NEEDED?AS NEEDED?TAKEN BY MOUTH
     Route: 048
     Dates: start: 20140808, end: 20140825
  4. OXYCODONE [Suspect]
     Active Substance: OXYCODONE
     Indication: BACK DISORDER
     Dosage: PILL 6 HOURS IF NEEDED?AS NEEDED?TAKEN BY MOUTH
     Route: 048
     Dates: start: 20140808, end: 20140825

REACTIONS (6)
  - Major depression [None]
  - Product quality issue [None]
  - Feeling abnormal [None]
  - Drug ineffective [None]
  - Product substitution issue [None]
  - Suicidal ideation [None]

NARRATIVE: CASE EVENT DATE: 20140701
